FAERS Safety Report 5073467-6 (Version None)
Quarter: 2006Q3

REPORT INFORMATION
  Report Type: 
  Country: None (occurrence: None)
  Receive Date: 20060808
  Receipt Date: 20060726
  Transmission Date: 20061208
  Serious: Yes (Other)
  Sender: FDA-Public Use
  Company Number: PHBS2006SE11140

PATIENT
  Age: 58 Year
  Sex: Female

DRUGS (10)
  1. ZOMETA [Suspect]
     Indication: METASTASES TO BONE
     Dosage: 4 MG, EVERY 4 WEEKS
     Route: 042
     Dates: start: 20040101
  2. FASLODEX [Concomitant]
     Route: 065
     Dates: start: 20040101
  3. TAXOTERE [Concomitant]
     Dosage: 20 MG, UNK
     Dates: start: 20050501
  4. LOSEC MUPS [Concomitant]
     Dosage: 20 MG/D
     Route: 048
  5. OXYNORM [Concomitant]
     Dosage: 5 MG/D
     Route: 048
  6. BETAPRED [Concomitant]
     Dosage: 0.5 MG/D
     Route: 048
  7. MORFIN [Concomitant]
     Dosage: 10 MG/D
     Route: 048
  8. EMGESAN [Concomitant]
     Dosage: 250 MG/D
     Route: 048
  9. CALCICHEW-D3 [Concomitant]
     Route: 048
  10. TRADOLAN [Concomitant]
     Dosage: 50 MG/D
     Route: 048

REACTIONS (2)
  - ARTHRALGIA [None]
  - OSTEONECROSIS [None]
